FAERS Safety Report 5880676-2 (Version None)
Quarter: 2008Q3

REPORT INFORMATION
  Report Type: 
  Country: None (occurrence: None)
  Receive Date: 20080911
  Receipt Date: 20080828
  Transmission Date: 20090109
  Serious: Yes (Other)
  Sender: FDA-Public Use
  Company Number: 2008002151

PATIENT

DRUGS (3)
  1. TARCEVA [Suspect]
  2. CISPLATIN [Suspect]
     Dosage: INTRAVENOUS
     Route: 042
  3. GEMCITABINE [Concomitant]

REACTIONS (1)
  - DEAFNESS [None]
